FAERS Safety Report 22183628 (Version 1)
Quarter: 2023Q2

REPORT INFORMATION
  Report Type: Spontaneous
  Country: US (occurrence: US)
  Receive Date: 20230406
  Receipt Date: 20230406
  Transmission Date: 20230721
  Serious: No
  Sender: FDA-Public Use
  Company Number: US-KARYOPHARM-2023KPT000988

PATIENT

DRUGS (15)
  1. XPOVIO [Suspect]
     Active Substance: SELINEXOR
     Indication: Plasma cell myeloma
     Dosage: 100 MG, WEEKLY
     Route: 048
     Dates: end: 20230320
  2. BUSPIRONE [Concomitant]
     Active Substance: BUSPIRONE HYDROCHLORIDE
  3. DARZALEX [Concomitant]
     Active Substance: DARATUMUMAB
  4. DEXAMETHASONE [Concomitant]
     Active Substance: DEXAMETHASONE
  5. FINASTERIDE [Concomitant]
     Active Substance: FINASTERIDE
  6. ESOMEPRAZOLE [Concomitant]
     Active Substance: ESOMEPRAZOLE
  7. FEXOFENADINE [Concomitant]
     Active Substance: FEXOFENADINE HYDROCHLORIDE
  8. FOLIVANE F [Concomitant]
  9. LEVOTHYROXINE [Concomitant]
     Active Substance: LEVOTHYROXINE
  10. POMALYST [Concomitant]
     Active Substance: POMALIDOMIDE
  11. SANCUSO [Concomitant]
     Active Substance: GRANISETRON
  12. PYRIDOXINE [Concomitant]
     Active Substance: PYRIDOXINE
  13. VALACYCLOVIR HYDROCHLORIDE [Concomitant]
     Active Substance: VALACYCLOVIR HYDROCHLORIDE
  14. ZOFRAN [Concomitant]
     Active Substance: ONDANSETRON HYDROCHLORIDE
  15. ZOLEDRONIC ACID [Concomitant]
     Active Substance: ZOLEDRONIC ACID

REACTIONS (4)
  - Muscle spasms [Unknown]
  - Oxygen saturation decreased [Unknown]
  - Fatigue [Unknown]
  - Pyrexia [Unknown]

NARRATIVE: CASE EVENT DATE: 20230101
